FAERS Safety Report 17451011 (Version 1)
Quarter: 2020Q1

REPORT INFORMATION
  Report Type: Spontaneous
  Country: US (occurrence: US)
  Receive Date: 20200222
  Receipt Date: 20200222
  Transmission Date: 20200409
  Serious: No
  Sender: FDA-Public Use
  Company Number: None

PATIENT
  Age: 58 Year
  Sex: Female
  Weight: 56.25 kg

DRUGS (10)
  1. MAGNESIUM ORATATE [Concomitant]
  2. TRAMADOL HCL TAB 50 MG (GENERIC EQUIVALENT OF ULTRAM TAB 50 MG) [Suspect]
     Active Substance: TRAMADOL HYDROCHLORIDE
     Indication: PUDENDAL CANAL SYNDROME
     Dosage: ?          QUANTITY:90 TABLET(S);?
     Route: 048
     Dates: start: 20200130, end: 20200222
  3. ALPRAZALOM 0.50MG (SANDOZ GENERIC SPECIFIC) [Concomitant]
  4. SAM-E 200MG [Concomitant]
  5. NAPROXEN SODIUM. [Concomitant]
     Active Substance: NAPROXEN SODIUM
  6. MIRALAX [Concomitant]
     Active Substance: POLYETHYLENE GLYCOL 3350
  7. BUTALBITAL/ACETAMINOPHEN/CAFFEIN 50-325-40 [Concomitant]
  8. VITAMIN B COMPLEX [Concomitant]
     Active Substance: CYANOCOBALAMIN\DEXPANTHENOL\NIACINAMIDE\PYRIDOXINE HYDROCHLORIDE\RIBOFLAVIN 5^-PHOSPHATE SODIUM\THIAMINE HYDROCHLORIDE\VITAMIN B COMPLEX
  9. VITAMIN D [Concomitant]
     Active Substance: VITAMIN D NOS
  10. ZYPAN DIGESTIVE ENZYME [Concomitant]

REACTIONS (14)
  - Product quality issue [None]
  - Muscle spasms [None]
  - Insomnia [None]
  - Headache [None]
  - Anxiety [None]
  - Withdrawal syndrome [None]
  - Product substitution issue [None]
  - Myalgia [None]
  - Anger [None]
  - Product complaint [None]
  - Decreased appetite [None]
  - Drug ineffective [None]
  - Gastric disorder [None]
  - Agitation [None]

NARRATIVE: CASE EVENT DATE: 20200130
